FAERS Safety Report 14174158 (Version 2)
Quarter: 2018Q1

REPORT INFORMATION
  Report Type: Spontaneous
  Country: FR (occurrence: FR)
  Receive Date: 20171109
  Receipt Date: 20180307
  Transmission Date: 20180508
  Serious: Yes (Hospitalization)
  Sender: FDA-Public Use
  Company Number: FR-PFIZER INC-2017474667

PATIENT
  Age: 65 Year
  Sex: Male

DRUGS (14)
  1. FLUDARABINE PHOSPHATE. [Concomitant]
     Active Substance: FLUDARABINE PHOSPHATE
     Indication: CHEMOTHERAPY
     Dosage: 80 MG, UNK
     Dates: start: 20170808
  2. ZYLORIC [Suspect]
     Active Substance: ALLOPURINOL
     Indication: TUMOUR LYSIS SYNDROME
     Dosage: 1 DF, 1X/DAY
     Route: 048
     Dates: start: 20170801, end: 20170905
  3. ZELITREX [Suspect]
     Active Substance: VALACYCLOVIR HYDROCHLORIDE
     Dosage: UNK
     Dates: start: 20170809, end: 20170905
  4. RITUXIMAB. [Concomitant]
     Active Substance: RITUXIMAB
     Dosage: 600 MG, UNK
     Dates: start: 20170809
  5. FLUDARABINE PHOSPHATE. [Concomitant]
     Active Substance: FLUDARABINE PHOSPHATE
     Dosage: 80 MG, UNK
     Dates: start: 20170809
  6. WELLVONE [Concomitant]
     Active Substance: ATOVAQUONE
  7. LEDERFOLINE [Suspect]
     Active Substance: LEUCOVORIN CALCIUM
     Dosage: UNK
     Route: 048
     Dates: start: 20170809, end: 20170905
  8. FLUDARABINE PHOSPHATE. [Concomitant]
     Active Substance: FLUDARABINE PHOSPHATE
     Dosage: 80 MG, UNK
     Dates: start: 20170810
  9. ENDOXAN /00021101/ [Concomitant]
     Active Substance: CYCLOPHOSPHAMIDE
     Dosage: 500 MG, UNK
     Dates: start: 20170810
  10. BACTRIM [Suspect]
     Active Substance: SULFAMETHOXAZOLE\TRIMETHOPRIM
     Dosage: UNK
     Route: 048
     Dates: start: 20170809, end: 20170905
  11. RITUXIMAB. [Concomitant]
     Active Substance: RITUXIMAB
     Indication: CHEMOTHERAPY
     Dosage: 100 MG, UNK
     Route: 042
     Dates: start: 20170808
  12. ENDOXAN /00021101/ [Concomitant]
     Active Substance: CYCLOPHOSPHAMIDE
     Dosage: 500 MG, UNK
     Dates: start: 20170808
  13. ENDOXAN /00021101/ [Concomitant]
     Active Substance: CYCLOPHOSPHAMIDE
     Dosage: 500 MG, UNK
     Dates: start: 20170809
  14. NEULASTA [Concomitant]
     Active Substance: PEGFILGRASTIM
     Dosage: 6 MG, UNK
     Dates: start: 20170811

REACTIONS (1)
  - Drug reaction with eosinophilia and systemic symptoms [Recovered/Resolved]

NARRATIVE: CASE EVENT DATE: 20170827
